FAERS Safety Report 24608420 (Version 1)
Quarter: 2024Q4

REPORT INFORMATION
  Report Type: Spontaneous
  Country: US (occurrence: US)
  Receive Date: 20241112
  Receipt Date: 20241112
  Transmission Date: 20250114
  Serious: No
  Sender: TARO
  Company Number: US-TARO PHARMACEUTICALS USA INC.-2024TAR01661

PATIENT

DRUGS (1)
  1. ADAPALENE [Suspect]
     Active Substance: ADAPALENE
     Indication: Rash
     Dosage: ONLY AT NIGHT, OD
     Route: 061
     Dates: start: 202407, end: 2024

REACTIONS (3)
  - Chemical burn of skin [Recovered/Resolved]
  - Sensitive skin [Recovered/Resolved]
  - Condition aggravated [Unknown]

NARRATIVE: CASE EVENT DATE: 20240701
